FAERS Safety Report 4967210-6 (Version None)
Quarter: 2006Q2

REPORT INFORMATION
  Report Type: 
  Country: None (occurrence: None)
  Receive Date: 20060403
  Receipt Date: 20060103
  Transmission Date: 20061013
  Serious: Yes (Other)
  Sender: FDA-Public Use
  Company Number: 2005110070

PATIENT
  Age: 65 Year
  Sex: Female

DRUGS (6)
  1. BEXTRA [Suspect]
     Indication: ARTHRITIS
     Dosage: 40 MG (20 MG, 2 IN 1 D)
     Dates: start: 20020529, end: 20020917
  2. DIFLUCAN [Concomitant]
  3. PREMARIN [Concomitant]
  4. LIBRAX [Concomitant]
  5. FLEXERIL [Concomitant]
  6. TETRACYCLINE [Concomitant]

REACTIONS (6)
  - BACK DISORDER [None]
  - DISCOMFORT [None]
  - DRUG EFFECT DECREASED [None]
  - INTERVERTEBRAL DISC PROTRUSION [None]
  - OEDEMA PERIPHERAL [None]
  - STEVENS-JOHNSON SYNDROME [None]
